FAERS Safety Report 8951394 (Version 1)
Quarter: 2012Q4

REPORT INFORMATION
  Report Type: 
  Country: CA (occurrence: CA)
  Receive Date: 20121207
  Receipt Date: 20121207
  Transmission Date: 20130627
  Serious: Yes (Other)
  Sender: FDA-Public Use
  Company Number: CA-JNJFOC-20121115252

PATIENT

DRUGS (1)
  1. REMICADE [Suspect]
     Indication: GASTROINTESTINAL DISORDER
     Route: 042

REACTIONS (1)
  - Dermal cyst [Unknown]
